FAERS Safety Report 7591885-9 (Version None)
Quarter: 2011Q3

REPORT INFORMATION
  Report Type: 
  Country: None (occurrence: None)
  Receive Date: 20110701
  Receipt Date: 20110701
  Transmission Date: 20111222
  Serious: Yes (Other)
  Sender: FDA-Public Use
  Company Number: None

PATIENT
  Sex: Female
  Weight: 53 kg

DRUGS (3)
  1. FOSAMAX PLUS D [Concomitant]
  2. VANCOMYCIN [Suspect]
     Indication: WOUND INFECTION STAPHYLOCOCCAL
     Dosage: 1000 MG Q12H IV
     Route: 042
     Dates: start: 20110530, end: 20110616
  3. BENAZEPRIL HYDROCHLORIDE [Concomitant]

REACTIONS (2)
  - HYPERSENSITIVITY [None]
  - NO REACTION ON PREVIOUS EXPOSURE TO DRUG [None]
